FAERS Safety Report 23519831 (Version 3)
Quarter: 2024Q3

REPORT INFORMATION
  Report Type: Report from Study
  Country: US (occurrence: US)
  Receive Date: 20240213
  Receipt Date: 20240729
  Transmission Date: 20241017
  Serious: Yes (Hospitalization, Other)
  Sender: EMD SERONO INC
  Company Number: US-Merck Healthcare KGaA-2023494763

PATIENT
  Sex: Male
  Weight: 67 kg

DRUGS (2)
  1. SEROSTIM [Suspect]
     Active Substance: SOMATROPIN
     Indication: Product used for unknown indication
  2. COVID-19 VACCINE NOS [Suspect]
     Active Substance: COVID-19 VACCINE
     Indication: COVID-19 immunisation

REACTIONS (6)
  - Cardiac failure [Unknown]
  - Illness [Unknown]
  - Diarrhoea [Unknown]
  - COVID-19 [Unknown]
  - Dyspnoea [Unknown]
  - Stent placement [Unknown]
